FAERS Safety Report 14847344 (Version 1)
Quarter: 2018Q2

REPORT INFORMATION
  Report Type: Spontaneous
  Country: US (occurrence: US)
  Receive Date: 20180504
  Receipt Date: 20180504
  Transmission Date: 20180711
  Serious: Yes (Hospitalization, Disabling)
  Sender: FDA-Public Use
  Company Number: US-JNJFOC-20180500827

PATIENT
  Age: 48 Year
  Sex: Male

DRUGS (1)
  1. INVOKANA [Suspect]
     Active Substance: CANAGLIFLOZIN
     Indication: TYPE 1 DIABETES MELLITUS
     Route: 048

REACTIONS (7)
  - Diabetic foot infection [Unknown]
  - Product use in unapproved indication [Unknown]
  - Osteomyelitis [Unknown]
  - Diabetic gangrene [Unknown]
  - Leg amputation [Unknown]
  - Toe amputation [Unknown]
  - Off label use [Unknown]

NARRATIVE: CASE EVENT DATE: 201610
